FAERS Safety Report 17798606 (Version 7)
Quarter: 2022Q1

REPORT INFORMATION
  Report Type: Spontaneous
  Country: US (occurrence: US)
  Receive Date: 20200518
  Receipt Date: 20220212
  Transmission Date: 20220423
  Serious: Yes (Death, Hospitalization, Other)
  Sender: FDA-Public Use
  Company Number: US-NOVARTISPH-NVSC2020US135232

PATIENT
  Age: 73 Year
  Sex: Female
  Weight: 43 kg

DRUGS (19)
  1. PIQRAY [Suspect]
     Active Substance: ALPELISIB
     Indication: Breast cancer
     Dosage: 250 MG, QD (DAILY)
     Route: 048
     Dates: start: 20191008, end: 20200430
  2. ELIQUIS [Concomitant]
     Active Substance: APIXABAN
     Indication: Product used for unknown indication
     Dosage: 5 MG, Q12H
     Route: 065
  3. LANSOPRAZOLE [Concomitant]
     Active Substance: LANSOPRAZOLE
     Indication: Product used for unknown indication
     Dosage: 30 MG, QD(BEFORE BREAKFAST).
     Route: 065
     Dates: start: 20200509
  4. OCTREOTIDE [Concomitant]
     Active Substance: OCTREOTIDE
     Indication: Colitis
     Dosage: 100 UG, TID
     Route: 065
     Dates: start: 20200520
  5. LOPERAMIDE [Concomitant]
     Active Substance: LOPERAMIDE
     Indication: Product used for unknown indication
     Dosage: 2 MG, QID
     Route: 065
  6. LOVAZA [Concomitant]
     Active Substance: OMEGA-3-ACID ETHYL ESTERS
     Indication: Product used for unknown indication
     Dosage: 2 G, BID
     Route: 065
  7. MYCELEX TROCHE [Concomitant]
     Indication: Product used for unknown indication
     Dosage: 1 UNK, QID
     Route: 065
  8. METOPROLOL [Concomitant]
     Active Substance: METOPROLOL
     Indication: Product used for unknown indication
     Dosage: 50 MG, QD
     Route: 065
  9. ROSUVASTATIN CALCIUM [Concomitant]
     Active Substance: ROSUVASTATIN CALCIUM
     Indication: Product used for unknown indication
     Dosage: 5 MG, QD
     Route: 065
  10. OXYCODONE [Concomitant]
     Active Substance: OXYCODONE
     Indication: Pain
     Dosage: 5 MG, Q4H
     Route: 065
  11. OXYCODONE [Concomitant]
     Active Substance: OXYCODONE
     Dosage: 6 DF, QD
     Route: 065
     Dates: start: 20200610
  12. APIXABAN [Concomitant]
     Active Substance: APIXABAN
     Indication: Product used for unknown indication
     Dosage: UNK
     Route: 065
  13. ROSUVASTATIN [Concomitant]
     Active Substance: ROSUVASTATIN
     Indication: Product used for unknown indication
     Dosage: 5 MG, NIGHTLY
     Route: 065
  14. DICYCLOMINE [Concomitant]
     Active Substance: DICYCLOMINE HYDROCHLORIDE
     Indication: Product used for unknown indication
     Dosage: UNK
     Route: 065
  15. FASLODEX [Concomitant]
     Active Substance: FULVESTRANT
     Indication: Product used for unknown indication
     Dosage: UNK(ON WEDNESDAY APRIL 29.)
     Route: 065
  16. AMIODARONE [Concomitant]
     Active Substance: AMIODARONE
     Indication: Product used for unknown indication
     Dosage: UNK
     Route: 065
  17. DIGOXIN [Concomitant]
     Active Substance: DIGOXIN
     Indication: Product used for unknown indication
     Dosage: UNK
     Route: 065
  18. DOPAMINE [Concomitant]
     Active Substance: DOPAMINE HYDROCHLORIDE
     Indication: Product used for unknown indication
     Dosage: UNK
     Route: 065
  19. LEVOPHED [Concomitant]
     Active Substance: NOREPINEPHRINE BITARTRATE
     Indication: Product used for unknown indication
     Dosage: UNK
     Route: 065

REACTIONS (50)
  - Multi-organ disorder [Fatal]
  - Dyspnoea [Fatal]
  - Lung infiltration [Fatal]
  - Pneumocystis jirovecii infection [Fatal]
  - Colitis [Not Recovered/Not Resolved]
  - Haematochezia [Recovered/Resolved]
  - Hypoxia [Unknown]
  - Gastrointestinal haemorrhage [Unknown]
  - Atrial fibrillation [Unknown]
  - Proteinuria [Unknown]
  - Hyperlipidaemia [Unknown]
  - Essential hypertension [Unknown]
  - Malnutrition [Unknown]
  - Dizziness [Unknown]
  - Hyponatraemia [Recovered/Resolved]
  - Hypophosphataemia [Recovered/Resolved]
  - Pneumonia [Unknown]
  - Hypokalaemia [Recovered/Resolved]
  - Diarrhoea [Recovering/Resolving]
  - Rectal ulcer [Unknown]
  - Neoplasm malignant [Unknown]
  - Inflammatory bowel disease [Unknown]
  - Diarrhoea haemorrhagic [Unknown]
  - Breast cancer [Unknown]
  - Malignant neoplasm progression [Unknown]
  - Metastases to lymph nodes [Unknown]
  - Metastases to bone [Unknown]
  - Metastases to lung [Not Recovered/Not Resolved]
  - Aspartate aminotransferase increased [Unknown]
  - Anal fistula [Unknown]
  - Abdominal distension [Unknown]
  - Weight decreased [Unknown]
  - Alanine aminotransferase increased [Unknown]
  - Abdominal pain [Unknown]
  - Blood alkaline phosphatase increased [Unknown]
  - Blood albumin decreased [Unknown]
  - Pyrexia [Recovered/Resolved]
  - Muscle spasms [Not Recovered/Not Resolved]
  - Cough [Unknown]
  - Chills [Unknown]
  - Abdominal pain upper [Unknown]
  - Abdominal discomfort [Unknown]
  - Ischaemia [Unknown]
  - Transaminases increased [Unknown]
  - Decreased appetite [Not Recovered/Not Resolved]
  - Infection [Unknown]
  - Haemorrhoids [Unknown]
  - Hepatitis B antibody positive [Unknown]
  - Liver function test abnormal [Unknown]
  - Blood lactate dehydrogenase increased [Unknown]

NARRATIVE: CASE EVENT DATE: 20200423
